FAERS Safety Report 5741329-4 (Version None)
Quarter: 2008Q2

REPORT INFORMATION
  Report Type: 
  Country: None (occurrence: None)
  Receive Date: 20080515
  Receipt Date: 20080509
  Transmission Date: 20081010
  Serious: Yes (Other)
  Sender: FDA-Public Use
  Company Number: 2008SP008853

PATIENT
  Sex: Female

DRUGS (1)
  1. PROVENTIL HFA (ALBUTEROL SULFATE (INHALATION) ) [Suspect]
     Indication: ASTHMA
     Dosage: PO
     Route: 048

REACTIONS (3)
  - ATRIAL FIBRILLATION [None]
  - CEREBROVASCULAR ACCIDENT [None]
  - HEART RATE INCREASED [None]
